FAERS Safety Report 19754552 (Version 5)
Quarter: 2021Q4

REPORT INFORMATION
  Report Type: Spontaneous
  Country: JP (occurrence: JP)
  Receive Date: 20210827
  Receipt Date: 20211121
  Transmission Date: 20220304
  Serious: Yes (Other)
  Sender: FDA-Public Use
  Company Number: NVSJ2021JP012510

PATIENT
  Age: 74 Year
  Sex: Male
  Weight: 55 kg

DRUGS (4)
  1. BEOVU [Suspect]
     Active Substance: BROLUCIZUMAB-DBLL
     Indication: Age-related macular degeneration
     Dosage: 6 MG
     Route: 031
     Dates: start: 20210610, end: 20210610
  2. DORZOLAMIDE HYDROCHLORIDE AND TIMOLOL MALEATE [Concomitant]
     Active Substance: DORZOLAMIDE HYDROCHLORIDE\TIMOLOL MALEATE
     Indication: Intraocular pressure increased
     Dosage: 1 DRP, BID
     Route: 047
     Dates: start: 20190118
  3. MOXIFLOXACIN [Concomitant]
     Active Substance: MOXIFLOXACIN
     Indication: Infection prophylaxis
     Dosage: 1 DRP, QID
     Route: 047
     Dates: start: 20210610, end: 20210618
  4. MOXIFLOXACIN [Concomitant]
     Active Substance: MOXIFLOXACIN
     Dosage: 1 DRP, QID
     Route: 047
     Dates: start: 20210816, end: 20210825

REACTIONS (8)
  - Uveitis [Recovering/Resolving]
  - Keratic precipitates [Recovered/Resolved]
  - Vitritis [Recovering/Resolving]
  - Vitreous opacities [Recovering/Resolving]
  - Serous retinal detachment [Recovered/Resolved]
  - Concomitant disease aggravated [Recovered/Resolved]
  - Vitreous floaters [Recovered/Resolved]
  - Retinal oedema [Recovered/Resolved]

NARRATIVE: CASE EVENT DATE: 20210816
